FAERS Safety Report 7396785-5 (Version None)
Quarter: 2011Q2

REPORT INFORMATION
  Report Type: 
  Country: None (occurrence: None)
  Receive Date: 20110406
  Receipt Date: 20110328
  Transmission Date: 20111010
  Serious: Yes (Other)
  Sender: FDA-Public Use
  Company Number: US-JNJFOC-20110312037

PATIENT
  Sex: Female

DRUGS (4)
  1. CHILDREN'S BENADRYL ALLERGY [Suspect]
     Indication: SLEEP DISORDER THERAPY
     Dosage: FIVE TO SIX CAPFULS
     Route: 048
  2. NYQUIL [Suspect]
     Indication: PRODUCT USED FOR UNKNOWN INDICATION
     Route: 048
  3. DIPHENHYDRAMINE HCL [Suspect]
     Indication: PRODUCT USED FOR UNKNOWN INDICATION
     Route: 065
  4. CHILDREN'S BENADRYL ALLERGY [Suspect]
     Route: 048

REACTIONS (4)
  - TREMOR [None]
  - PRODUCT QUALITY ISSUE [None]
  - DRUG ABUSE [None]
  - OFF LABEL USE [None]
